FAERS Safety Report 12351108 (Version 1)
Quarter: 2016Q2

REPORT INFORMATION
  Report Type: Spontaneous
  Country: US (occurrence: None)
  Receive Date: 20160509
  Receipt Date: 20160509
  Transmission Date: 20160815
  Serious: Yes (Hospitalization)
  Sender: FDA-Public Use
  Company Number: None

PATIENT
  Age: 29 Year
  Sex: Female
  Weight: 50.8 kg

DRUGS (1)
  1. ERIBULIN [Suspect]
     Active Substance: ERIBULIN
     Indication: CERVIX CARCINOMA
     Dosage: 1.4 D1+D8 OF DAY 21 CYCLE

REACTIONS (7)
  - Urinary tract infection [None]
  - Nausea [None]
  - Acute kidney injury [None]
  - Pelvic pain [None]
  - Vomiting [None]
  - Anaemia [None]
  - Bone pain [None]

NARRATIVE: CASE EVENT DATE: 20160412
